FAERS Safety Report 17749541 (Version 1)
Quarter: 2020Q2

REPORT INFORMATION
  Report Type: Spontaneous
  Country: IT (occurrence: IT)
  Receive Date: 20200506
  Receipt Date: 20200506
  Transmission Date: 20200714
  Serious: Yes (Other)
  Sender: FDA-Public Use
  Company Number: IT-ALKEM LABORATORIES LIMITED-IT-ALKEM-2020-01611

PATIENT
  Age: 57 Year
  Sex: Female

DRUGS (1)
  1. FINASTERIDE. [Suspect]
     Active Substance: FINASTERIDE
     Indication: HIRSUTISM
     Dosage: 5 MILLIGRAM, QD
     Route: 065

REACTIONS (2)
  - Temporal lobe epilepsy [Recovered/Resolved]
  - Fall [Recovered/Resolved]
